FAERS Safety Report 7081688-6 (Version None)
Quarter: 2010Q4

REPORT INFORMATION
  Report Type: 
  Country: None (occurrence: None)
  Receive Date: 20101103
  Receipt Date: 20101022
  Transmission Date: 20110411
  Serious: Yes (Hospitalization)
  Sender: FDA-Public Use
  Company Number: ES-ELI_LILLY_AND_COMPANY-ES201010005420

PATIENT
  Sex: Female
  Weight: 65 kg

DRUGS (8)
  1. FORTEO [Suspect]
     Indication: OSTEOPOROSIS
     Dosage: 20 UG, DAILY (1/D)
     Route: 058
     Dates: start: 20090917
  2. PROZAC [Concomitant]
     Indication: ANXIETY
     Dosage: 20 MG, DAILY (1/D)
     Route: 048
  3. TRANKIMAZIN [Concomitant]
     Indication: ANXIETY
     Dosage: 1 MG, DAILY (1/D)
     Route: 048
  4. XICIL [Concomitant]
     Dosage: 1 SACHET, DAILY
     Route: 048
  5. VENORUTON [Concomitant]
     Indication: VARICOSE VEIN
     Dosage: 1 TABLET, DAILY (1/D)
     Route: 048
  6. NOLOTIL [Concomitant]
     Indication: PAIN
     Dosage: 1 TABLET, EVERY 8 HRS
  7. ZALDIAR [Concomitant]
     Indication: PAIN
     Dosage: 1 TABLET, EVERY 8 HOURS IF NEEDED
     Route: 048
  8. SUTRIL [Concomitant]
     Indication: DIURETIC THERAPY
     Dosage: 1 TABLET, EVERY 24 HOURS IN ALTERNATING DAYS
     Route: 048

REACTIONS (2)
  - FALL [None]
  - UPPER LIMB FRACTURE [None]
